FAERS Safety Report 6574220-4 (Version None)
Quarter: 2010Q1

REPORT INFORMATION
  Report Type: 
  Country: None (occurrence: None)
  Receive Date: 20100208
  Receipt Date: 20100202
  Transmission Date: 20100710
  Serious: Yes (Other)
  Sender: FDA-Public Use
  Company Number: CHPA2010US02051

PATIENT
  Age: 34 Year
  Sex: Female
  Weight: 122.45 kg

DRUGS (1)
  1. NODOZ (NCH) [Suspect]
     Indication: SOMNOLENCE
     Dosage: UNK DF, QD
     Route: 048

REACTIONS (7)
  - BLOOD PRESSURE INCREASED [None]
  - DRUG DEPENDENCE [None]
  - IMPAIRED WORK ABILITY [None]
  - INSOMNIA [None]
  - OVERDOSE [None]
  - SOMNOLENCE [None]
  - STRESS [None]
